FAERS Safety Report 10301036 (Version 1)
Quarter: 2014Q3

REPORT INFORMATION
  Report Type: Other
  Country: GB (occurrence: GB)
  Receive Date: 20140714
  Receipt Date: 20140714
  Transmission Date: 20150326
  Serious: Yes (Death, Other)
  Sender: FDA-Public Use
  Company Number: GB-MACLEODS PHARMACEUTICALS US LTD-MAC2014001177

PATIENT

DRUGS (24)
  1. IBUPROFEN. [Suspect]
     Active Substance: IBUPROFEN
     Indication: ANALGESIC THERAPY
     Dosage: 1200 MG, UNK
     Route: 048
     Dates: start: 20140109
  2. RAMIPRIL. [Suspect]
     Active Substance: RAMIPRIL
     Indication: HYPERTENSION
     Dosage: 2.5 MG, UNK
     Route: 048
     Dates: start: 20140113
  3. AMLODIPINE BESYLATE. [Suspect]
     Active Substance: AMLODIPINE BESYLATE
     Indication: HYPERTENSION
     Dosage: 30 MG, UNK
     Route: 048
  4. LIORESAL [Suspect]
     Active Substance: BACLOFEN
     Dosage: 248.72 ?G, QD
     Route: 037
     Dates: start: 20140204, end: 20140206
  5. ZOPICLONE [Suspect]
     Active Substance: ZOPICLONE
     Indication: INSOMNIA
     Dosage: 3.75 MG, UNK
     Route: 048
     Dates: start: 20130220
  6. LIORESAL [Suspect]
     Active Substance: BACLOFEN
     Dosage: 227.52 ?G, QD
     Route: 037
     Dates: start: 20140225, end: 20140225
  7. CO-DYDRAMOL [Suspect]
     Active Substance: ACETAMINOPHEN\DIHYDROCODEINE
     Indication: ANALGESIC THERAPY
     Dosage: 2000 MG, UNK
     Route: 048
     Dates: start: 20140109
  8. LIORESAL [Suspect]
     Active Substance: BACLOFEN
     Dosage: 297.42 ?G, QD
     Route: 037
     Dates: start: 20140121, end: 20140121
  9. LIORESAL [Suspect]
     Active Substance: BACLOFEN
     Dosage: 172.03 ?G, QD
     Route: 037
     Dates: start: 20140122, end: 20140122
  10. LIORESAL [Suspect]
     Active Substance: BACLOFEN
     Dosage: 248.72 ?G, QD
     Route: 037
     Dates: start: 20140128, end: 20140130
  11. PARACETAMOL [Suspect]
     Active Substance: ACETAMINOPHEN
     Indication: ANALGESIC THERAPY
     Dosage: 1000 MG, PRN
     Route: 048
     Dates: start: 20121112
  12. BACLOFEN. [Suspect]
     Active Substance: BACLOFEN
     Indication: MUSCLE SPASTICITY
     Dosage: 60 MG, UNK
     Route: 048
     Dates: start: 20120801, end: 20140120
  13. LIORESAL [Suspect]
     Active Substance: BACLOFEN
     Dosage: 249.98 ?G, QD
     Route: 037
     Dates: start: 20140226, end: 20140310
  14. SERTRALINE [Suspect]
     Active Substance: SERTRALINE HYDROCHLORIDE
     Indication: DEPRESSION
     Dosage: 50 MG, UNK
     Route: 048
     Dates: start: 20121210, end: 20140101
  15. VENLAFAXINE [Suspect]
     Active Substance: VENLAFAXINE HYDROCHLORIDE
     Indication: DEPRESSION
     Dosage: 75 MG, UNK
     Route: 048
     Dates: start: 20140226
  16. SILDENAFIL FILM COATED TABLET 50 MG [Suspect]
     Active Substance: SILDENAFIL
     Indication: ERECTILE DYSFUNCTION
     Dosage: 50 MG, PRN
     Route: 048
     Dates: start: 20130220
  17. LIORESAL [Suspect]
     Active Substance: BACLOFEN
     Dosage: 120.13 ?G, QD
     Route: 037
     Dates: start: 20140120, end: 20140120
  18. LIORESAL [Suspect]
     Active Substance: BACLOFEN
     Dosage: UNK
     Route: 037
     Dates: start: 20140120
  19. LIORESAL [Suspect]
     Active Substance: BACLOFEN
     Dosage: 207.44 ?G, QD
     Route: 037
     Dates: start: 20140207, end: 20140224
  20. METOPROLOL [Suspect]
     Active Substance: METOPROLOL
     Indication: HYPERTENSION
     Dosage: 300 MG, UNK
     Route: 048
     Dates: start: 20120705
  21. LIORESAL [Suspect]
     Active Substance: BACLOFEN
     Indication: MUSCLE SPASTICITY
     Dosage: 100 ?G, QD
     Route: 037
     Dates: start: 20140117, end: 20140119
  22. LIORESAL [Suspect]
     Active Substance: BACLOFEN
     Dosage: 207.44 ?G, QD
     Route: 037
     Dates: start: 20140123, end: 20140127
  23. LIORESAL [Suspect]
     Active Substance: BACLOFEN
     Dosage: 143.94 ?G, QD
     Route: 037
     Dates: start: 20140121, end: 20140203
  24. LIORESAL [Suspect]
     Active Substance: BACLOFEN
     Dosage: 274.29 ?G, QD
     Route: 037
     Dates: start: 20140311

REACTIONS (10)
  - Condition aggravated [Unknown]
  - Unevaluable event [Unknown]
  - Erectile dysfunction [Unknown]
  - Pain [Unknown]
  - Pain in extremity [Unknown]
  - Pre-existing disease [None]
  - Fall [Unknown]
  - Sudden death [Fatal]
  - Injury [None]
  - Insomnia [Unknown]
